FAERS Safety Report 18895769 (Version 2)
Quarter: 2021Q1

REPORT INFORMATION
  Report Type: Report from Study
  Country: BR (occurrence: BR)
  Receive Date: 20210215
  Receipt Date: 20210323
  Transmission Date: 20210420
  Serious: Yes (Hospitalization, Other)
  Sender: FDA-Public Use
  Company Number: NVSC2021BR032875

PATIENT
  Age: 58 Year
  Sex: Female

DRUGS (4)
  1. COSENTYX [Suspect]
     Active Substance: SECUKINUMAB
     Dosage: 150 MG, QMO
     Route: 065
     Dates: start: 20210226
  2. ALENDRONIC ACID [Suspect]
     Active Substance: ALENDRONIC ACID
     Indication: PRODUCT USED FOR UNKNOWN INDICATION
     Dosage: UNK UNK, UNKNOWN
     Route: 065
  3. CALCIUM [Concomitant]
     Active Substance: CALCIUM
     Indication: PRODUCT USED FOR UNKNOWN INDICATION
     Dosage: UNK
     Route: 065
  4. COSENTYX [Suspect]
     Active Substance: SECUKINUMAB
     Indication: ANKYLOSING SPONDYLITIS
     Dosage: 150 MG, QMO (EVERY 30 DAYS)
     Route: 065
     Dates: start: 201911

REACTIONS (11)
  - Musculoskeletal stiffness [Not Recovered/Not Resolved]
  - Fall [Recovering/Resolving]
  - Humerus fracture [Recovering/Resolving]
  - Arthralgia [Not Recovered/Not Resolved]
  - Pain in extremity [Unknown]
  - Osteoporosis [Unknown]
  - Muscular weakness [Not Recovered/Not Resolved]
  - Upper limb fracture [Recovering/Resolving]
  - Limb discomfort [Not Recovered/Not Resolved]
  - Sacroiliitis [Unknown]
  - Ulnar nerve injury [Not Recovered/Not Resolved]

NARRATIVE: CASE EVENT DATE: 2020
